FAERS Safety Report 20349129 (Version 1)
Quarter: 2022Q1

REPORT INFORMATION
  Report Type: Spontaneous
  Country: US (occurrence: US)
  Receive Date: 20220119
  Receipt Date: 20220119
  Transmission Date: 20220423
  Serious: No
  Sender: FDA-Public Use
  Company Number: US-Blueprint Medicines Corporation-SP-US-2022-000089

PATIENT
  Age: 69 Year
  Sex: Male

DRUGS (2)
  1. AYVAKIT [Suspect]
     Active Substance: AVAPRITINIB
     Indication: Systemic mastocytosis
     Route: 048
     Dates: start: 20210920
  2. JAKAFI [Concomitant]
     Active Substance: RUXOLITINIB
     Indication: Systemic mastocytosis
     Route: 048

REACTIONS (5)
  - Paraesthesia [Unknown]
  - Laboratory test abnormal [Recovered/Resolved]
  - Joint swelling [Unknown]
  - Swelling [Unknown]
  - Fatigue [Unknown]
